FAERS Safety Report 8446422-3 (Version None)
Quarter: 2012Q2

REPORT INFORMATION
  Report Type: 
  Country: None (occurrence: None)
  Receive Date: 20120618
  Receipt Date: 20120319
  Transmission Date: 20120825
  Serious: No
  Sender: FDA-Public Use
  Company Number: US-TEVA-328638USA

PATIENT
  Sex: Female

DRUGS (1)
  1. ACTIQ [Suspect]
     Indication: CROHN'S DISEASE
     Route: 002
     Dates: end: 20120301

REACTIONS (2)
  - OFF LABEL USE [None]
  - LOGORRHOEA [None]
